FAERS Safety Report 12298751 (Version 1)
Quarter: 2016Q2

REPORT INFORMATION
  Report Type: Spontaneous
  Country: US (occurrence: None)
  Receive Date: 20160422
  Receipt Date: 20160422
  Transmission Date: 20160815
  Serious: No
  Sender: FDA-Public Use
  Company Number: None

PATIENT
  Age: 58 Year
  Sex: Male

DRUGS (2)
  1. DROXIA [Concomitant]
     Active Substance: HYDROXYUREA
  2. NORTHERA [Suspect]
     Active Substance: DROXIDOPA
     Indication: BLOOD GLUCOSE DECREASED
     Route: 048
     Dates: start: 20160316, end: 20160420

REACTIONS (3)
  - Drug prescribing error [None]
  - Drug dispensing error [None]
  - Product selection error [None]

NARRATIVE: CASE EVENT DATE: 20160316
